FAERS Safety Report 24441946 (Version 2)
Quarter: 2024Q4

REPORT INFORMATION
  Report Type: Report from Study
  Country: BY (occurrence: BY)
  Receive Date: 20241016
  Receipt Date: 20241017
  Transmission Date: 20250114
  Serious: No
  Sender: ROCHE
  Company Number: BY-ROCHE-3520917

PATIENT
  Age: 11 Year
  Sex: Male
  Weight: 32.0 kg

DRUGS (14)
  1. EMICIZUMAB [Suspect]
     Active Substance: EMICIZUMAB
     Indication: Factor VIII deficiency
     Dosage: DOSE LAST STUDY DRUG ADMIN PRIOR AE 99 MG?START DATE OF MOST RECENT DOSE OF STUDY DRUG PRIOR TO AE 2
     Route: 058
     Dates: start: 20230227
  2. EMICIZUMAB [Suspect]
     Active Substance: EMICIZUMAB
     Route: 058
     Dates: start: 20230306
  3. EMICIZUMAB [Suspect]
     Active Substance: EMICIZUMAB
     Route: 058
     Dates: start: 20231016
  4. EMICIZUMAB [Suspect]
     Active Substance: EMICIZUMAB
     Route: 058
     Dates: start: 20231030
  5. EMICIZUMAB [Suspect]
     Active Substance: EMICIZUMAB
     Route: 058
     Dates: start: 20231113
  6. EMICIZUMAB [Suspect]
     Active Substance: EMICIZUMAB
     Route: 058
     Dates: start: 20240108
  7. PROTHROMBIN COMPLEX CONCENTRATE [Suspect]
     Active Substance: COAGULATION FACTOR IX HUMAN\COAGULATION FACTOR VII HUMAN\COAGULATION FACTOR X HUMAN\PROTEIN C\PROTEI
     Indication: Factor VIII deficiency
     Dosage: START DATE OF MOST RECENT DOSE OF STUDY DRUG PRIOR TO AE 25/FEB/2023
     Route: 042
     Dates: start: 20131223
  8. PROTHROMBIN COMPLEX CONCENTRATE [Suspect]
     Active Substance: COAGULATION FACTOR IX HUMAN\COAGULATION FACTOR VII HUMAN\COAGULATION FACTOR X HUMAN\PROTEIN C\PROTEI
     Dosage: 1000.00 UNIT
     Route: 042
     Dates: start: 20221207
  9. PROTHROMBIN COMPLEX CONCENTRATE [Suspect]
     Active Substance: COAGULATION FACTOR IX HUMAN\COAGULATION FACTOR VII HUMAN\COAGULATION FACTOR X HUMAN\PROTEIN C\PROTEI
     Dosage: 2000.00 UNIT
     Route: 042
     Dates: start: 20221225
  10. PROTHROMBIN COMPLEX CONCENTRATE [Suspect]
     Active Substance: COAGULATION FACTOR IX HUMAN\COAGULATION FACTOR VII HUMAN\COAGULATION FACTOR X HUMAN\PROTEIN C\PROTEI
     Dosage: 3000.00 UNIT
     Route: 042
     Dates: start: 20230222
  11. COAGULATION FACTOR VIIA RECOMBINANT HUMAN [Suspect]
     Active Substance: COAGULATION FACTOR VIIA RECOMBINANT HUMAN
     Indication: Factor VIII deficiency
     Dosage: DOSE LAST STUDY DRUG ADMIN PRIOR AE 2.4?START DATE OF MOST RECENT DOSE OF STUDY DRUG PRIOR TO AE 02/
     Route: 042
     Dates: start: 20131223
  12. COAGULATION FACTOR VIIA RECOMBINANT HUMAN [Suspect]
     Active Substance: COAGULATION FACTOR VIIA RECOMBINANT HUMAN
     Route: 042
     Dates: start: 20230208
  13. COAGULATION FACTOR VIIA RECOMBINANT HUMAN [Suspect]
     Active Substance: COAGULATION FACTOR VIIA RECOMBINANT HUMAN
     Route: 042
     Dates: start: 20230207
  14. COAGULATION FACTOR VIIA RECOMBINANT HUMAN [Suspect]
     Active Substance: COAGULATION FACTOR VIIA RECOMBINANT HUMAN
     Route: 042
     Dates: start: 20230228

REACTIONS (1)
  - Respiratory tract infection [Recovered/Resolved]

NARRATIVE: CASE EVENT DATE: 20240203
